FAERS Safety Report 15345474 (Version 2)
Quarter: 2018Q3

REPORT INFORMATION
  Report Type: Spontaneous
  Country: FR (occurrence: FR)
  Receive Date: 20180903
  Receipt Date: 20180914
  Transmission Date: 20181010
  Serious: Yes (Disabling, Other)
  Sender: FDA-Public Use
  Company Number: FR-ASTRAZENECA-2018SF09724

PATIENT
  Age: 72 Year
  Sex: Female

DRUGS (2)
  1. LEXOMIL [Concomitant]
     Active Substance: BROMAZEPAM
  2. MOPRAL [Suspect]
     Active Substance: OMEPRAZOLE
     Indication: GASTROOESOPHAGEAL REFLUX DISEASE
     Route: 048

REACTIONS (15)
  - Gait disturbance [Unknown]
  - Constipation [Unknown]
  - Tubulointerstitial nephritis [Unknown]
  - Chest discomfort [Unknown]
  - Myalgia [Unknown]
  - Hyperhidrosis [Unknown]
  - Gastric polyps [Unknown]
  - Vestibular disorder [Unknown]
  - Hypomagnesaemia [Unknown]
  - Dysgeusia [Unknown]
  - Off label use [Recovered/Resolved]
  - Balance disorder [Unknown]
  - Vision blurred [Unknown]
  - Abdominal pain [Unknown]
  - Incorrect drug administration duration [Recovered/Resolved]
